FAERS Safety Report 9416854 (Version 3)
Quarter: 2015Q2

REPORT INFORMATION
  Report Type: Spontaneous
  Country: US (occurrence: US)
  Receive Date: 20130724
  Receipt Date: 20150524
  Transmission Date: 20150821
  Serious: Yes (Other)
  Sender: FDA-Public Use
  Company Number: US-JNJFOC-20130707767

PATIENT

DRUGS (5)
  1. ATOMOXETINE [Suspect]
     Active Substance: ATOMOXETINE
     Indication: ATTENTION DEFICIT/HYPERACTIVITY DISORDER
     Route: 065
  2. METHYLPHENIDATE HYDROCHLORIDE. [Suspect]
     Active Substance: METHYLPHENIDATE HYDROCHLORIDE
     Indication: ATTENTION DEFICIT/HYPERACTIVITY DISORDER
     Route: 048
  3. ATOMOXETINE [Suspect]
     Active Substance: ATOMOXETINE
     Indication: ATTENTION DEFICIT/HYPERACTIVITY DISORDER
     Route: 065
  4. METHYLPHENIDATE HYDROCHLORIDE. [Suspect]
     Active Substance: METHYLPHENIDATE HYDROCHLORIDE
     Indication: ATTENTION DEFICIT/HYPERACTIVITY DISORDER
     Route: 048
  5. ATOMOXETINE [Suspect]
     Active Substance: ATOMOXETINE
     Indication: ATTENTION DEFICIT/HYPERACTIVITY DISORDER
     Dosage: BASED ON TOLERABILITY
     Route: 065

REACTIONS (16)
  - Electrocardiogram QRS complex prolonged [Unknown]
  - Insomnia [Unknown]
  - Logorrhoea [Unknown]
  - Electrocardiogram QT prolonged [Unknown]
  - Decreased appetite [Unknown]
  - Dry mouth [Unknown]
  - Abdominal discomfort [Unknown]
  - Mood altered [Unknown]
  - Electrocardiogram PR shortened [Unknown]
  - Enuresis [Unknown]
  - Rhinitis [Unknown]
  - Irritability [Unknown]
  - Mydriasis [Unknown]
  - Eye pruritus [Unknown]
  - Weight decreased [Unknown]
  - Headache [Unknown]
